FAERS Safety Report 9354792 (Version 3)
Quarter: 2013Q3

REPORT INFORMATION
  Report Type: Spontaneous
  Country: JP (occurrence: JP)
  Receive Date: 20130619
  Receipt Date: 20130816
  Transmission Date: 20140515
  Serious: Yes (Other)
  Sender: FDA-Public Use
  Company Number: JP-009507513-1306JPN006940

PATIENT
  Age: 49 Year
  Sex: Female

DRUGS (12)
  1. GASTER D [Suspect]
     Indication: GASTRITIS
     Dosage: 10 MG, BID
     Route: 048
     Dates: start: 20120418, end: 201204
  2. ADETPHOS [Concomitant]
     Indication: DEAFNESS
     Dosage: 1 G, TID
     Route: 048
  3. ADETPHOS [Concomitant]
     Dosage: UNK
     Route: 048
  4. PREDONINE [Concomitant]
     Indication: DEAFNESS
     Dosage: 5 MG, BID
     Route: 048
     Dates: end: 201204
  5. PREDONINE [Concomitant]
     Dosage: UNK
     Route: 048
  6. ISOBIDE [Concomitant]
     Indication: DEAFNESS
     Dosage: 30 ML, TID
     Route: 048
     Dates: start: 20120411, end: 201204
  7. ISOBIDE [Concomitant]
     Dosage: UNK
     Route: 048
  8. METHYCOBAL [Concomitant]
     Indication: MENIERE^S DISEASE
     Dosage: UNK
     Dates: end: 201204
  9. METHYCOBAL [Concomitant]
     Indication: DEAFNESS
  10. MUCODYNE [Concomitant]
     Indication: ACUTE SINUSITIS
     Dosage: UNK
     Dates: start: 20120411, end: 20120417
  11. HOMOCLOMIN [Concomitant]
     Indication: RHINITIS ALLERGIC
     Dosage: UNK
     Dates: start: 20120411, end: 20120417
  12. SELBEX [Concomitant]
     Indication: GASTRITIS
     Dosage: UNK
     Dates: start: 20120411, end: 20120417

REACTIONS (1)
  - Drug eruption [Unknown]
